FAERS Safety Report 17876987 (Version 1)
Quarter: 2020Q2

REPORT INFORMATION
  Report Type: Spontaneous
  Country: FR (occurrence: FR)
  Receive Date: 20200609
  Receipt Date: 20200609
  Transmission Date: 20200714
  Serious: Yes (Hospitalization)
  Sender: FDA-Public Use
  Company Number: FR-MYLANLABS-2020M1054715

PATIENT
  Age: 79 Year
  Sex: Female
  Weight: 69 kg

DRUGS (8)
  1. AMLODIPIN MYLAN 5 MG TABLETTEN [Suspect]
     Active Substance: AMLODIPINE BESYLATE
     Indication: PRODUCT USED FOR UNKNOWN INDICATION
     Dosage: 5 MILLIGRAM, QD
  2. LOXEN                              /00639802/ [Concomitant]
     Active Substance: NICARDIPINE HYDROCHLORIDE
     Dosage: UNK
  3. RAMIPRIL. [Concomitant]
     Active Substance: RAMIPRIL
     Dosage: UNK
  4. BRILIQUE [Concomitant]
     Active Substance: TICAGRELOR
     Dosage: UNK
  5. LANSOPRAZOL MYLAN, 30 MG C?PSULAS GASTRORRESISTENTES [Suspect]
     Active Substance: LANSOPRAZOLE
     Indication: GASTRIC DISORDER
     Dosage: 30 MILLIGRAM, QD
     Dates: start: 20200316, end: 20200515
  6. BISOPROLOL ZYDUS [Concomitant]
     Dosage: UNK
  7. KARDEGIC [Concomitant]
     Active Substance: ASPIRIN DL-LYSINE
     Dosage: UNK
  8. ZYMAD [Concomitant]
     Active Substance: CHOLECALCIFEROL
     Dosage: UNK

REACTIONS (16)
  - Fatigue [Recovering/Resolving]
  - Myalgia [Recovering/Resolving]
  - Vertigo [Recovering/Resolving]
  - Pallor [Recovering/Resolving]
  - Anaemia [Recovering/Resolving]
  - Haemoglobin decreased [Recovering/Resolving]
  - Internal haemorrhage [Recovering/Resolving]
  - Muscle disorder [Recovering/Resolving]
  - Chest pain [Recovering/Resolving]
  - Depression [Recovering/Resolving]
  - Gait disturbance [Recovering/Resolving]
  - Muscle spasms [Recovered/Resolved]
  - Drug withdrawal syndrome [Recovering/Resolving]
  - Suicidal behaviour [Recovering/Resolving]
  - Eye disorder [Recovering/Resolving]
  - Asthenia [Recovering/Resolving]

NARRATIVE: CASE EVENT DATE: 202003
